FAERS Safety Report 4769939-1 (Version None)
Quarter: 2005Q3

REPORT INFORMATION
  Report Type: 
  Country: None (occurrence: None)
  Receive Date: 20050915
  Receipt Date: 20050910
  Transmission Date: 20060218
  Serious: Yes (Hospitalization)
  Sender: FDA-Public Use
  Company Number: GB-GLAXOSMITHKLINE-B0393584A

PATIENT
  Age: 48 Year
  Sex: Male

DRUGS (7)
  1. IBUPROFEN [Suspect]
     Dosage: 400MG SEE DOSAGE TEXT
     Route: 048
  2. ASPIRIN [Suspect]
     Dosage: 75MG PER DAY
     Route: 048
     Dates: end: 20050828
  3. DOXAZOSIN [Concomitant]
     Dosage: 8MG PER DAY
     Route: 048
     Dates: end: 20050822
  4. BEZAFIBRATE [Concomitant]
     Dosage: 400MG PER DAY
     Route: 048
     Dates: end: 20050822
  5. SPIRONOLACTONE [Concomitant]
     Dosage: 50MG PER DAY
     Route: 048
     Dates: end: 20050822
  6. ALLOPURINOL [Concomitant]
     Dosage: 300MG PER DAY
     Route: 048
     Dates: end: 20050822
  7. IRBESARTAN - HYDROCHLOROTHIAZIDE [Concomitant]
     Route: 048
     Dates: end: 20050822

REACTIONS (2)
  - GASTRITIS [None]
  - GASTROINTESTINAL HAEMORRHAGE [None]
